FAERS Safety Report 18166205 (Version 2)
Quarter: 2020Q3

REPORT INFORMATION
  Report Type: Report from Study
  Country: US (occurrence: US)
  Receive Date: 20200819
  Receipt Date: 20200820
  Transmission Date: 20201103
  Serious: Yes (Other)
  Sender: FDA-Public Use
  Company Number: US-AMGEN-USASP2020129611

PATIENT
  Age: 64 Year
  Sex: Female
  Weight: 45.35 kg

DRUGS (1)
  1. PROLIA [Suspect]
     Active Substance: DENOSUMAB
     Indication: OSTEOPOROSIS POSTMENOPAUSAL
     Dosage: 60 MILLIGRAM, Q6MO
     Route: 065

REACTIONS (9)
  - Fracture [Unknown]
  - Joint injury [Unknown]
  - Spinal osteoarthritis [Unknown]
  - Lumbar vertebral fracture [Unknown]
  - Contusion [Unknown]
  - Thoracic vertebral fracture [Unknown]
  - Muscle spasms [Unknown]
  - Back injury [Unknown]
  - Fall [Unknown]

NARRATIVE: CASE EVENT DATE: 2020
